FAERS Safety Report 9269462 (Version 1)
Quarter: 2013Q2

REPORT INFORMATION
  Report Type: Spontaneous
  Country: KR (occurrence: KR)
  Receive Date: 20130503
  Receipt Date: 20130503
  Transmission Date: 20140414
  Serious: Yes (Hospitalization)
  Sender: FDA-Public Use
  Company Number: KR-JNJFOC-20130416271

PATIENT
  Age: 12 Month
  Sex: Female

DRUGS (1)
  1. TYLENOL SUSPENSION LIQUID [Suspect]
     Indication: PYREXIA
     Dosage: 4-5 TIMES
     Route: 048
     Dates: start: 2012

REACTIONS (2)
  - Drug ineffective [Unknown]
  - Hepatic enzyme increased [Recovered/Resolved]
